FAERS Safety Report 20036652 (Version 1)
Quarter: 2021Q4

REPORT INFORMATION
  Report Type: Spontaneous
  Country: US (occurrence: US)
  Receive Date: 20211105
  Receipt Date: 20211105
  Transmission Date: 20220303
  Serious: No
  Sender: FDA-Public Use
  Company Number: US-BEH-2021137840

PATIENT
  Sex: Male
  Weight: 40.2 kg

DRUGS (1)
  1. PRIVIGEN [Suspect]
     Active Substance: HUMAN IMMUNOGLOBULIN G
     Indication: Acute lymphocytic leukaemia
     Dosage: 15 GRAM, QMT
     Route: 042
     Dates: start: 202103

REACTIONS (3)
  - Weight fluctuation [Unknown]
  - No adverse event [Unknown]
  - Off label use [Unknown]
